FAERS Safety Report 4841300-0 (Version None)
Quarter: 2005Q4

REPORT INFORMATION
  Report Type: 
  Country: None (occurrence: None)
  Receive Date: 20051130
  Receipt Date: 20051128
  Transmission Date: 20060501
  Serious: Yes (Other)
  Sender: FDA-Public Use
  Company Number: 200514290EU

PATIENT
  Age: 62 Year
  Sex: Male

DRUGS (2)
  1. NICORETTE [Suspect]
     Route: 002
     Dates: start: 20040101
  2. ANTIDIABETIC [Concomitant]

REACTIONS (5)
  - BLOOD GLUCOSE INCREASED [None]
  - DRUG DEPENDENCE [None]
  - IRRITABILITY [None]
  - MEDICATION ERROR [None]
  - SOMNOLENCE [None]
